FAERS Safety Report 10223375 (Version 2)
Quarter: 2014Q2

REPORT INFORMATION
  Report Type: Spontaneous
  Country: IT (occurrence: IT)
  Receive Date: 20140609
  Receipt Date: 20140630
  Transmission Date: 20141212
  Serious: Yes (Hospitalization)
  Sender: FDA-Public Use
  Company Number: IT-AMGEN INC.-ITASP2014042292

PATIENT
  Age: 70 Year
  Sex: Female

DRUGS (4)
  1. ENBREL [Suspect]
     Indication: PSORIATIC ARTHROPATHY
     Dosage: 50 MG, WEEKLY
     Route: 058
     Dates: start: 20140301, end: 20140511
  2. APROVEL [Concomitant]
     Indication: HYPERTENSION
     Dosage: UNK
  3. DILATREND [Concomitant]
     Dosage: UNK
  4. ZYLORIC [Concomitant]
     Dosage: UNK

REACTIONS (3)
  - Abdominal pain upper [Recovered/Resolved]
  - Hyperhidrosis [Recovered/Resolved]
  - Hypertransaminasaemia [Recovered/Resolved]
